APPROVED DRUG PRODUCT: CAMPTOSAR
Active Ingredient: IRINOTECAN HYDROCHLORIDE
Strength: 40MG/2ML (20MG/ML)
Dosage Form/Route: INJECTABLE;INJECTION
Application: N020571 | Product #001 | TE Code: AP
Applicant: PFIZER INC
Approved: Jun 14, 1996 | RLD: Yes | RS: Yes | Type: RX